FAERS Safety Report 12628525 (Version 1)
Quarter: 2016Q3

REPORT INFORMATION
  Report Type: Spontaneous
  Country: US (occurrence: None)
  Receive Date: 20160805
  Receipt Date: 20160805
  Transmission Date: 20161109
  Serious: No
  Sender: FDA-Public Use
  Company Number: None

PATIENT
  Age: 55 Year
  Sex: Female
  Weight: 65.77 kg

DRUGS (1)
  1. CRESTOR [Suspect]
     Active Substance: ROSUVASTATIN CALCIUM
     Indication: BLOOD CHOLESTEROL INCREASED
     Route: 048
     Dates: end: 20160801

REACTIONS (6)
  - Insomnia [None]
  - Muscle spasms [None]
  - Fatigue [None]
  - Breath odour [None]
  - Dry mouth [None]
  - Feeling hot [None]

NARRATIVE: CASE EVENT DATE: 20160801
